FAERS Safety Report 4432870-5 (Version None)
Quarter: 2004Q3

REPORT INFORMATION
  Report Type: 
  Country: None (occurrence: None)
  Receive Date: 20040823
  Receipt Date: 20040811
  Transmission Date: 20050211
  Serious: Yes (Hospitalization)
  Sender: FDA-Public Use
  Company Number: CIP04001332

PATIENT
  Age: 90 Year
  Sex: Female

DRUGS (15)
  1. FURADANTINE (NITROFURANTOIN, MACROCRYSTALS) CAPSULE, 50MG [Suspect]
     Indication: URINARY TRACT INFECTION
     Dosage: 50 MG, DAILY, ORAL
     Route: 048
     Dates: start: 20040417, end: 20040508
  2. COTAREG ^NOVARTIS^ (VALSARTAN) [Suspect]
     Dosage: 1000 DAILY, ORAL
     Route: 048
     Dates: end: 20040508
  3. EDUCTYL (SODIUM BICARBONATE, POTASSIUM BITARTRATE) SUPPOSITORY [Suspect]
     Dosage: ORAL
     Route: 048
     Dates: start: 20040503, end: 20040505
  4. DI-ANTALVIC (DEXTROPROPOXYPHENE HYDROCHLORIDE) CAPSULE [Suspect]
     Dosage: 2 CAPSULES DAILY, ORAL
     Route: 048
     Dates: end: 20040508
  5. LASIX [Suspect]
     Dosage: 40 MG, DAILY, ORAL
     Route: 048
  6. CORTANCYL (PREDNISONE) [Concomitant]
  7. LEVOTHYROXINE SODIUM [Concomitant]
  8. STILNOX /FRA/(ZOLPIDEM) [Concomitant]
  9. HEMIGOXINE NATIVELLE [Concomitant]
  10. POTASSIUM CHLORIDE [Concomitant]
  11. KARDEGIC /FRA/(ACETYLSALICYLIC LYSINE) [Concomitant]
  12. DIAFUSOR [Concomitant]
  13. DEBRIDAT ^IBRAHIM^ (TRIMEBUTINE MALEATE) [Concomitant]
  14. DUPHALAC [Concomitant]
  15. LANSOYL (PARAFFIN, LIQUID) [Concomitant]

REACTIONS (11)
  - BILIARY TRACT DISORDER [None]
  - BLOOD AMYLASE INCREASED [None]
  - CHOLESTASIS [None]
  - DEHYDRATION [None]
  - DIABETES MELLITUS [None]
  - HEPATOCELLULAR DAMAGE [None]
  - HYPONATRAEMIA [None]
  - HYPOTENSION [None]
  - LIPASE INCREASED [None]
  - PANCREATIC INJURY [None]
  - RENAL FAILURE [None]
